FAERS Safety Report 23989892 (Version 2)
Quarter: 2024Q3

REPORT INFORMATION
  Report Type: Spontaneous
  Country: TW (occurrence: TW)
  Receive Date: 20240619
  Receipt Date: 20240708
  Transmission Date: 20241017
  Serious: Yes (Life-Threatening, Other)
  Sender: PFIZER
  Company Number: TW-PFIZER INC-PV202400078394

PATIENT
  Age: 78 Year
  Sex: Female
  Weight: 56.4 kg

DRUGS (4)
  1. PIPERACILLIN SODIUM\TAZOBACTAM SODIUM [Suspect]
     Active Substance: PIPERACILLIN SODIUM\TAZOBACTAM SODIUM
     Indication: Infection prophylaxis
     Dosage: 4.5 G, Q6H
     Route: 041
     Dates: start: 20240310, end: 20240310
  2. CEFTRIAXONE [Concomitant]
     Active Substance: CEFTRIAXONE\CEFTRIAXONE SODIUM
     Indication: Infection prophylaxis
     Dosage: 1 GM, Q12H
  3. CEFAZOLIN [Concomitant]
     Active Substance: CEFAZOLIN
     Indication: Surgery
     Dosage: 1 GM, ONCE
  4. PHENAZOPYRIDINE [Concomitant]
     Active Substance: PHENAZOPYRIDINE
     Indication: Dysuria
     Dosage: 100 MG, TID

REACTIONS (2)
  - Anaphylactic reaction [Recovered/Resolved]
  - Respiratory acidosis [Recovered/Resolved]

NARRATIVE: CASE EVENT DATE: 20240310
